FAERS Safety Report 8841936 (Version 1)
Quarter: 2012Q4

REPORT INFORMATION
  Report Type: Spontaneous
  Country: US (occurrence: None)
  Receive Date: 20121015
  Receipt Date: 20121015
  Transmission Date: 20130627
  Serious: Yes (Hospitalization)
  Sender: FDA-Public Use
  Company Number: None

PATIENT
  Age: 81 Year
  Sex: Female
  Weight: 57.15 kg

DRUGS (6)
  1. THALIDOMIDE [Suspect]
     Indication: ALZHEIMER^S DISEASE
     Dosage: 200 MG/4PILLS/QD/PO
     Route: 048
     Dates: start: 20120917, end: 20121007
  2. GLIPIZIDE [Concomitant]
  3. CALTRATE WITH VITAMIN D [Concomitant]
  4. EXELON PATCH [Concomitant]
  5. NAMENDA [Concomitant]
  6. ZOCOR [Concomitant]

REACTIONS (2)
  - Urinary tract infection [None]
  - Inflammatory bowel disease [None]
